FAERS Safety Report 8776487 (Version 2)
Quarter: 2012Q4

REPORT INFORMATION
  Report Type: Report from Study
  Country: CA (occurrence: CA)
  Receive Date: 20120910
  Receipt Date: 20120917
  Transmission Date: 20130627
  Serious: Yes (Other)
  Sender: FDA-Public Use
  Company Number: CA-JNJFOC-20120900990

PATIENT
  Sex: Male
  Weight: 150 kg

DRUGS (2)
  1. REMICADE [Suspect]
     Indication: CROHN^S DISEASE
     Route: 042
     Dates: start: 20080904
  2. REMICADE [Suspect]
     Indication: CROHN^S DISEASE
     Dosage: 25th infusion
     Route: 042
     Dates: start: 20120724

REACTIONS (2)
  - Bronchitis [Unknown]
  - Diabetes mellitus [Recovered/Resolved]
